FAERS Safety Report 7360495-0 (Version None)
Quarter: 2011Q1

REPORT INFORMATION
  Report Type: 
  Country: None (occurrence: None)
  Receive Date: 20110318
  Receipt Date: 20110121
  Transmission Date: 20110831
  Serious: No
  Sender: FDA-Public Use
  Company Number: US-B.I. PHARMACEUTICALS,INC./RIDGEFIELD-2011-BP-02160BP

PATIENT
  Sex: Female

DRUGS (2)
  1. PRADAXA [Suspect]
     Indication: ATRIAL FIBRILLATION
     Dosage: 300 MG
     Route: 048
     Dates: start: 20110119
  2. MULTAQ [Concomitant]
     Indication: ATRIAL FIBRILLATION
     Dates: end: 20110101

REACTIONS (4)
  - MENTAL IMPAIRMENT [None]
  - DISORIENTATION [None]
  - ASTHENIA [None]
  - FEELING ABNORMAL [None]
